FAERS Safety Report 18311827 (Version 1)
Quarter: 2020Q3

REPORT INFORMATION
  Report Type: Spontaneous
  Country: US (occurrence: US)
  Receive Date: 20200924
  Receipt Date: 20200924
  Transmission Date: 20201103
  Serious: Yes (Hospitalization)
  Sender: FDA-Public Use
  Company Number: None

PATIENT
  Age: 45 Year
  Sex: Female

DRUGS (2)
  1. HUMIRA [Suspect]
     Active Substance: ADALIMUMAB
     Indication: RHEUMATOID ARTHRITIS
     Dosage: ?          OTHER DOSE:1 PEN;?
     Route: 058
     Dates: start: 20200220
  2. HYDROCO/APAP [Suspect]
     Active Substance: ACETAMINOPHEN\HYDROCODONE

REACTIONS (3)
  - Hepatic failure [None]
  - Pain [None]
  - Illness [None]

NARRATIVE: CASE EVENT DATE: 20200713
